FAERS Safety Report 5678301-9 (Version None)
Quarter: 2008Q1

REPORT INFORMATION
  Report Type: 
  Country: None (occurrence: None)
  Receive Date: 20080320
  Receipt Date: 20080310
  Transmission Date: 20080703
  Serious: Yes (Other)
  Sender: FDA-Public Use
  Company Number: CFNTY-202

PATIENT
  Age: 32 Year
  Sex: Female

DRUGS (2)
  1. MEIACT MS TABLET (CEFDITOREN PIVOXIL) [Suspect]
     Dosage: 300 MG, PO
     Route: 048
     Dates: start: 20080223, end: 20080227
  2. KEJIFEN (SERRAPEPTASE) [Suspect]
     Dosage: 30 MG
     Dates: start: 20080223, end: 20080227

REACTIONS (1)
  - RHABDOMYOLYSIS [None]
